FAERS Safety Report 7578853-8 (Version None)
Quarter: 2011Q2

REPORT INFORMATION
  Report Type: 
  Country: None (occurrence: None)
  Receive Date: 20110628
  Receipt Date: 20110616
  Transmission Date: 20111010
  Serious: Yes (Other)
  Sender: FDA-Public Use
  Company Number: RU-UCBSA-035611

PATIENT
  Sex: Female
  Weight: 62 kg

DRUGS (6)
  1. CERTOLIZUMAB PEGOL [Suspect]
     Indication: RHEUMATOID ARTHRITIS
     Route: 058
     Dates: start: 20060504, end: 20080219
  2. DICLOFENAC SODIUM [Concomitant]
     Indication: ARTHRITIS
     Route: 048
     Dates: start: 20050601
  3. CERTOLIZUMAB PEGOL [Suspect]
     Route: 058
     Dates: start: 20080220
  4. ACID FOLIC [Concomitant]
     Indication: ADVERSE DRUG REACTION
     Route: 048
     Dates: start: 20021201
  5. ENALAPRIL MALEATE [Concomitant]
     Indication: ESSENTIAL HYPERTENSION
     Route: 048
     Dates: start: 20050601
  6. METHOTREXATE [Concomitant]
     Indication: ARTHRITIS
     Route: 048
     Dates: start: 20080306

REACTIONS (1)
  - PERITONSILLAR ABSCESS [None]
